FAERS Safety Report 7538251-X (Version None)
Quarter: 2011Q2

REPORT INFORMATION
  Report Type: 
  Country: None (occurrence: None)
  Receive Date: 20110609
  Receipt Date: 20070302
  Transmission Date: 20111010
  Serious: Yes (Other)
  Sender: FDA-Public Use
  Company Number: PHFR2007GB00954

PATIENT
  Sex: Female

DRUGS (1)
  1. CLOZAPINE [Suspect]
     Indication: SCHIZOPHRENIA
     Route: 048
     Dates: start: 20061222

REACTIONS (4)
  - BLOOD SODIUM DECREASED [None]
  - PYREXIA [None]
  - LOWER RESPIRATORY TRACT INFECTION [None]
  - HEART RATE INCREASED [None]
